FAERS Safety Report 9693477 (Version 1)
Quarter: 2013Q4

REPORT INFORMATION
  Report Type: Spontaneous
  Country: AU (occurrence: AU)
  Receive Date: 20131118
  Receipt Date: 20131118
  Transmission Date: 20140711
  Serious: Yes (Other)
  Sender: FDA-Public Use
  Company Number: AU-ABBVIE-13P-008-1157476-00

PATIENT
  Sex: Male

DRUGS (3)
  1. SODIUM VALPROATE [Suspect]
     Indication: PRODUCT USED FOR UNKNOWN INDICATION
  2. MIDAZOLAM [Suspect]
     Indication: PRODUCT USED FOR UNKNOWN INDICATION
  3. THIOPENTAL SODIUM [Suspect]
     Indication: PRODUCT USED FOR UNKNOWN INDICATION

REACTIONS (3)
  - Grand mal convulsion [Unknown]
  - Drug level decreased [Unknown]
  - Hepatic function abnormal [Unknown]
